FAERS Safety Report 5884246-1 (Version None)
Quarter: 2008Q3

REPORT INFORMATION
  Report Type: 
  Country: None (occurrence: None)
  Receive Date: 20080911
  Receipt Date: 20080827
  Transmission Date: 20090109
  Serious: Yes (Hospitalization)
  Sender: FDA-Public Use
  Company Number: 2008BI022184

PATIENT
  Age: 34 Year
  Sex: Male

DRUGS (3)
  1. TYSABRI [Suspect]
     Indication: MULTIPLE SCLEROSIS
     Dosage: 300 MG; QM; IV
     Route: 042
     Dates: end: 20080801
  2. AVONEX [Concomitant]
  3. COPAXONE [Concomitant]

REACTIONS (3)
  - EOSINOPHILIA [None]
  - FOLLICULITIS [None]
  - PRURITUS [None]
